FAERS Safety Report 6241527-X (Version None)
Quarter: 2009Q2

REPORT INFORMATION
  Report Type: 
  Country: None (occurrence: None)
  Receive Date: 20090623
  Receipt Date: 20040623
  Transmission Date: 20091009
  Serious: Yes (Death)
  Sender: FDA-Public Use
  Company Number: TR-ROCHE-371837

PATIENT
  Sex: Male
  Weight: 71 kg

DRUGS (19)
  1. DACLIZUMAB [Suspect]
     Route: 042
     Dates: start: 20030615
  2. DACLIZUMAB [Suspect]
     Route: 042
     Dates: start: 20030630
  3. DACLIZUMAB [Suspect]
     Dosage: WEEK 6 VISIT.
     Route: 042
     Dates: start: 20030728
  4. DACLIZUMAB [Suspect]
     Route: 042
     Dates: start: 20030811
  5. MYCOPHENOLATE MOFETIL [Suspect]
     Route: 048
     Dates: start: 20030615
  6. MYCOPHENOLATE MOFETIL [Suspect]
     Route: 048
     Dates: start: 20030624, end: 20040505
  7. SIROLIMUS [Suspect]
     Route: 048
     Dates: start: 20030615
  8. METHYLPREDNISOLONE [Suspect]
     Route: 042
     Dates: start: 20030616, end: 20030623
  9. LISINOPRIL [Concomitant]
     Route: 048
     Dates: start: 20030703
  10. PRAVASTATIN [Concomitant]
     Route: 048
     Dates: start: 20030716
  11. ACYCLOVIR [Concomitant]
     Route: 048
     Dates: start: 20030716
  12. CIPROFLOXACIN [Concomitant]
     Route: 048
     Dates: start: 20040227
  13. ETAMBUTOL [Concomitant]
     Route: 048
     Dates: start: 20040219
  14. ISONIAZID [Concomitant]
     Route: 048
     Dates: start: 20040219, end: 20040227
  15. ISONIAZID [Concomitant]
     Route: 048
     Dates: start: 20040308
  16. METHYLPREDNISOLONE [Suspect]
     Route: 048
     Dates: start: 20030624
  17. PYRAZINAMIDE [Concomitant]
     Route: 048
     Dates: start: 20040219
  18. RIFAMPICIN [Concomitant]
     Route: 048
     Dates: start: 20040219, end: 20040227
  19. SULFAMETHOXAZOLE AND TRIMETHOPRIM [Concomitant]
     Dosage: DRUG: TRIMETHOPRIMSULFOMETAKSAZOL
     Route: 048
     Dates: start: 20030623

REACTIONS (2)
  - LUNG NEOPLASM MALIGNANT [None]
  - SMALL CELL LUNG CANCER STAGE UNSPECIFIED [None]
